FAERS Safety Report 9857598 (Version 3)
Quarter: 2014Q1

REPORT INFORMATION
  Report Type: Report from Study
  Country: CA (occurrence: CA)
  Receive Date: 20140131
  Receipt Date: 20140224
  Transmission Date: 20141002
  Serious: Yes (Other)
  Sender: FDA-Public Use
  Company Number: CA-ROCHE-1338435

PATIENT
  Age: 76 Year
  Sex: Female
  Weight: 65.8 kg

DRUGS (5)
  1. RITUXAN [Suspect]
     Indication: RHEUMATOID ARTHRITIS
     Dosage: FREQUENCY: DAY 1 AND 15?- LATEST RITUXIMAB INFUSION: 03/FEB/2014
     Route: 042
     Dates: start: 20110720
  2. METHOTREXATE [Suspect]
     Indication: PRODUCT USED FOR UNKNOWN INDICATION
     Route: 065
  3. LIPITOR [Suspect]
     Indication: PRODUCT USED FOR UNKNOWN INDICATION
     Route: 065
  4. ELTROXIN [Suspect]
     Indication: PRODUCT USED FOR UNKNOWN INDICATION
     Route: 065
  5. TYLENOL #3 (CANADA) [Concomitant]

REACTIONS (4)
  - Hepatic enzyme increased [Unknown]
  - Nephrolithiasis [Unknown]
  - Arthritis [Unknown]
  - Insomnia [Unknown]
